FAERS Safety Report 8592299-5 (Version None)
Quarter: 2012Q3

REPORT INFORMATION
  Report Type: 
  Country: None (occurrence: None)
  Receive Date: 20120814
  Receipt Date: 20120726
  Transmission Date: 20120928
  Serious: No
  Sender: FDA-Public Use
  Company Number: US-BAYER-2012-076737

PATIENT
  Sex: Female

DRUGS (1)
  1. CLIMARA PRO [Suspect]

REACTIONS (3)
  - PRODUCT ADHESION ISSUE [None]
  - IRRITABILITY [None]
  - TOOTHACHE [None]
